FAERS Safety Report 4574134-5 (Version None)
Quarter: 2005Q1

REPORT INFORMATION
  Report Type: 
  Country: None (occurrence: None)
  Receive Date: 20050208
  Receipt Date: 20041026
  Transmission Date: 20050727
  Serious: No
  Sender: FDA-Public Use
  Company Number: US-GLAXOSMITHKLINE-A0531312A

PATIENT
  Sex: Male

DRUGS (3)
  1. PAXIL [Suspect]
     Route: 048
     Dates: start: 19940101
  2. PAXIL [Suspect]
     Route: 048
     Dates: start: 20030101
  3. NO CONCURRENT MEDICATION [Concomitant]

REACTIONS (4)
  - ANXIETY [None]
  - DRUG WITHDRAWAL SYNDROME [None]
  - INSOMNIA [None]
  - PALPITATIONS [None]
